FAERS Safety Report 7291505-7 (Version None)
Quarter: 2011Q1

REPORT INFORMATION
  Report Type: 
  Country: None (occurrence: None)
  Receive Date: 20110201
  Receipt Date: 20110117
  Transmission Date: 20110831
  Serious: Yes (Disabling)
  Sender: FDA-Public Use
  Company Number: AUR-APL-20111-00250

PATIENT
  Age: 70 Year
  Sex: Female
  Weight: 50 kg

DRUGS (6)
  1. SIMVASTATIN [Concomitant]
  2. AMLODIPINE [Concomitant]
  3. ACETAMINOPHEN [Concomitant]
  4. AMOXICILLIN [Suspect]
  5. OMEPRAZOLE [Concomitant]
  6. DONEPEZIL HCL [Suspect]
     Indication: DEMENTIA ALZHEIMER'S TYPE
     Dosage: 10MG-ORAL
     Route: 048

REACTIONS (2)
  - MEMORY IMPAIRMENT [None]
  - DRUG EFFECT DECREASED [None]
